FAERS Safety Report 20228481 (Version 3)
Quarter: 2022Q1

REPORT INFORMATION
  Report Type: Report from Study
  Country: US (occurrence: US)
  Receive Date: 20211225
  Receipt Date: 20220201
  Transmission Date: 20220423
  Serious: No
  Sender: FDA-Public Use
  Company Number: US-NOVARTISTESTPH-NVSC2021US295944

PATIENT
  Age: 65 Year
  Sex: Male

DRUGS (2)
  1. COSENTYX [Suspect]
     Active Substance: SECUKINUMAB
     Indication: Psoriasis
     Dosage: UNK
     Route: 065
  2. COSENTYX [Suspect]
     Active Substance: SECUKINUMAB
     Dosage: UNK, QMO
     Route: 058
     Dates: start: 20190101

REACTIONS (7)
  - COVID-19 [Recovered/Resolved]
  - Erythema [Recovering/Resolving]
  - Skin exfoliation [Recovering/Resolving]
  - Psoriasis [Recovering/Resolving]
  - Body surface area decreased [Recovering/Resolving]
  - Rhinorrhoea [Unknown]
  - Fatigue [Unknown]

NARRATIVE: CASE EVENT DATE: 20211229
